FAERS Safety Report 7383249-8 (Version None)
Quarter: 2011Q1

REPORT INFORMATION
  Report Type: 
  Country: None (occurrence: None)
  Receive Date: 20110330
  Receipt Date: 20110315
  Transmission Date: 20110831
  Serious: Yes (Other)
  Sender: FDA-Public Use
  Company Number: PHHY2011FR14316

PATIENT
  Sex: Male
  Weight: 70 kg

DRUGS (1)
  1. RASILEZ HCT [Suspect]
     Indication: HYPERTENSION
     Dosage: 1 DF, QD, 150 MG/12.5 MG
     Route: 048
     Dates: start: 20101129, end: 20101222

REACTIONS (2)
  - TOXIC SKIN ERUPTION [None]
  - RASH GENERALISED [None]
